FAERS Safety Report 15690867 (Version 1)
Quarter: 2018Q4

REPORT INFORMATION
  Report Type: Spontaneous
  Country: SE (occurrence: GB)
  Receive Date: 20181205
  Receipt Date: 20181205
  Transmission Date: 20190205
  Serious: Yes (Other)
  Sender: FDA-Public Use
  Company Number: SE-SHIRE-GB201846277

PATIENT

DRUGS (1)
  1. KIOVIG [Suspect]
     Active Substance: HUMAN IMMUNOGLOBULIN G
     Indication: RHESUS INCOMPATIBILITY
     Route: 042

REACTIONS (2)
  - Hydrops foetalis [Unknown]
  - Exposure during pregnancy [Unknown]
